FAERS Safety Report 7166797-5 (Version None)
Quarter: 2010Q4

REPORT INFORMATION
  Report Type: 
  Country: None (occurrence: None)
  Receive Date: 20101213
  Receipt Date: 20101213
  Transmission Date: 20110411
  Serious: Yes (Death)
  Sender: FDA-Public Use
  Company Number: None

PATIENT
  Age: 62 Year
  Sex: Female

DRUGS (1)
  1. ESTRACE [Suspect]
     Indication: BREAST CANCER METASTATIC
     Dosage: (5)X2MG-10MGTID=30MG/DAY TOTAL TID PO
     Route: 048
     Dates: start: 20091108, end: 20091121

REACTIONS (2)
  - BREAST CANCER METASTATIC [None]
  - MALIGNANT NEOPLASM PROGRESSION [None]
